FAERS Safety Report 6923860-9 (Version None)
Quarter: 2010Q3

REPORT INFORMATION
  Report Type: 
  Country: None (occurrence: None)
  Receive Date: 20100813
  Receipt Date: 20091124
  Transmission Date: 20110219
  Serious: No
  Sender: FDA-Public Use
  Company Number: US-BRISTOL-MYERS SQUIBB COMPANY-14871503

PATIENT

DRUGS (1)
  1. REYATAZ [Suspect]

REACTIONS (1)
  - HEPATIC ENZYME INCREASED [None]
